FAERS Safety Report 13287229 (Version 1)
Quarter: 2017Q1

REPORT INFORMATION
  Report Type: Spontaneous
  Country: FR (occurrence: FR)
  Receive Date: 20170302
  Receipt Date: 20170302
  Transmission Date: 20170428
  Serious: Yes (Life-Threatening, Hospitalization)
  Sender: FDA-Public Use
  Company Number: FR-PFIZER INC-2017086976

PATIENT
  Age: 29 Year
  Sex: Male

DRUGS (4)
  1. CODEINE [Suspect]
     Active Substance: CODEINE
     Dosage: UP TO 8 DF PER DAY
     Route: 048
  2. XANAX [Suspect]
     Active Substance: ALPRAZOLAM
     Dosage: UP TO 30 DF DAILY
     Route: 048
  3. TRAMADOL HYDROCHLORIDE. [Suspect]
     Active Substance: TRAMADOL HYDROCHLORIDE
     Dosage: UP TO 50 DF PER DAY
     Route: 048
  4. LEVOTHYROX [Concomitant]
     Active Substance: LEVOTHYROXINE
     Dosage: UNK

REACTIONS (7)
  - Anxiety [Recovering/Resolving]
  - Partial seizures [Recovered/Resolved]
  - Drug dependence [Recovering/Resolving]
  - Coma [Recovered/Resolved]
  - Loss of consciousness [Recovered/Resolved]
  - Overdose [Recovering/Resolving]
  - Poisoning deliberate [Recovered/Resolved]
